FAERS Safety Report 8432892 (Version 5)
Quarter: 2013Q3

REPORT INFORMATION
  Report Type: Spontaneous
  Country: IE (occurrence: IE)
  Receive Date: 20120229
  Receipt Date: 20130729
  Transmission Date: 20140515
  Serious: Yes (Hospitalization, Other)
  Sender: FDA-Public Use
  Company Number: IE-US-EMD SERONO, INC.-7114750

PATIENT
  Sex: Female

DRUGS (4)
  1. REBIF [Suspect]
     Indication: RELAPSING-REMITTING MULTIPLE SCLEROSIS
     Route: 058
     Dates: start: 20040721
  2. MIRAPEXIN [Concomitant]
     Indication: RESTLESS LEGS SYNDROME
     Route: 048
     Dates: start: 201201
  3. CYMBALTA [Concomitant]
     Indication: RESTLESS LEGS SYNDROME
     Route: 048
     Dates: start: 201201
  4. ZILEZE [Concomitant]
     Indication: SLEEP DISORDER THERAPY
     Route: 048

REACTIONS (6)
  - Pneumonia [Recovered/Resolved]
  - Lower respiratory tract infection [Recovered/Resolved]
  - Restless legs syndrome [Recovered/Resolved]
  - Muscular weakness [Recovering/Resolving]
  - Fall [Recovered/Resolved]
  - Treatment noncompliance [Recovered/Resolved]
